FAERS Safety Report 8556510 (Version 2)
Quarter: 2012Q4

REPORT INFORMATION
  Report Type: 
  Country: US (occurrence: US)
  Receive Date: 20120510
  Receipt Date: 20121004
  Transmission Date: 20130627
  Serious: Yes (Other)
  Sender: FDA-Public Use
  Company Number: US-US-EMD SERONO, INC.-7130222

PATIENT
  Age: 65 None
  Sex: Female

DRUGS (4)
  1. REBIF [Suspect]
     Indication: MULTIPLE SCLEROSIS
     Route: 058
     Dates: start: 20110921
  2. GABAPENIN [Concomitant]
     Indication: HEADACHE
     Dates: start: 2008
  3. GABAPENIN [Concomitant]
  4. LYRICA [Concomitant]
     Indication: PRODUCT USED FOR UNKNOWN INDICATION

REACTIONS (2)
  - Concussion [Recovering/Resolving]
  - Faecal incontinence [Not Recovered/Not Resolved]
